FAERS Safety Report 5370910-X (Version None)
Quarter: 2007Q2

REPORT INFORMATION
  Report Type: 
  Country: None (occurrence: None)
  Receive Date: 20070626
  Receipt Date: 20070612
  Transmission Date: 20071010
  Serious: Yes (Hospitalization, Other)
  Sender: FDA-Public Use
  Company Number: US-SHR-US-2007-022101

PATIENT
  Age: 35 Year
  Sex: Female

DRUGS (1)
  1. BETASERON [Suspect]
     Indication: MULTIPLE SCLEROSIS
     Dosage: 4 MIU, EVERY 2D
     Route: 058
     Dates: start: 20070519

REACTIONS (3)
  - CONVULSION [None]
  - SYNCOPE [None]
  - TACHYCARDIA [None]
